FAERS Safety Report 5368413-1 (Version None)
Quarter: 2007Q2

REPORT INFORMATION
  Report Type: 
  Country: None (occurrence: None)
  Receive Date: 20070622
  Receipt Date: 20070622
  Transmission Date: 20071010
  Serious: Yes (Death)
  Sender: FDA-Public Use
  Company Number: None

PATIENT
  Age: 52 Year
  Sex: Male

DRUGS (1)
  1. TNKASE [Suspect]
     Indication: ACUTE MYOCARDIAL INFARCTION
     Dosage: 45MG  ONE TIME  IV BOLUS
     Route: 040
     Dates: start: 20070618, end: 20070618

REACTIONS (6)
  - ANGIOEDEMA [None]
  - CARDIO-RESPIRATORY ARREST [None]
  - CONVULSION [None]
  - PULSE ABSENT [None]
  - RESPIRATORY DISTRESS [None]
  - VENTRICULAR FIBRILLATION [None]
